FAERS Safety Report 7113000-8 (Version None)
Quarter: 2010Q4

REPORT INFORMATION
  Report Type: 
  Country: None (occurrence: None)
  Receive Date: 20101119
  Receipt Date: 20101006
  Transmission Date: 20110411
  Serious: No
  Sender: FDA-Public Use
  Company Number: US-ASTRAZENECA-2010SE47297

PATIENT
  Sex: Female
  Weight: 73.5 kg

DRUGS (1)
  1. VIMOVO [Suspect]
     Route: 048
     Dates: start: 20100920

REACTIONS (1)
  - GASTROOESOPHAGEAL REFLUX DISEASE [None]
